FAERS Safety Report 23302740 (Version 1)
Quarter: 2023Q4

REPORT INFORMATION
  Report Type: Spontaneous
  Country: FR (occurrence: FR)
  Receive Date: 20231215
  Receipt Date: 20231215
  Transmission Date: 20240110
  Serious: Yes (Other)
  Sender: FDA-Public Use
  Company Number: None

PATIENT
  Age: 61 Year
  Sex: Male
  Weight: 75 kg

DRUGS (11)
  1. BORTEZOMIB [Suspect]
     Active Substance: BORTEZOMIB
     Indication: Plasma cell myeloma
     Dosage: AT D1,4,5,15 OF EACH CYCLE?2.45 MG?SUBCUTANEOUS?ROA-20066000
     Route: 058
     Dates: start: 20231114, end: 20231114
  2. BORTEZOMIB [Suspect]
     Active Substance: BORTEZOMIB
     Dosage: AT D1,4,5,15 OF EACH CYCLE?2.45 MG?SUBCUTANEOUS?ROA-20066000
     Route: 058
     Dates: start: 20231117, end: 20231117
  3. BORTEZOMIB [Suspect]
     Active Substance: BORTEZOMIB
     Dosage: AT D1,4,5,15 OF EACH CYCLE?2.45 MG?SUBCUTANEOUS?ROA-20066000
     Route: 058
     Dates: start: 20231118, end: 20231118
  4. AMOXICILLIN [Suspect]
     Active Substance: AMOXICILLIN
     Indication: Opportunistic infection prophylaxis
     Dosage: 1 GRAM?ORAL?ROA-20053000
     Dates: start: 20231023, end: 20231128
  5. VALACYCLOVIR HYDROCHLORIDE [Suspect]
     Active Substance: VALACYCLOVIR HYDROCHLORIDE
     Indication: Opportunistic infection prophylaxis
     Dosage: 500 MG?ORAL?ROA-20053000
     Dates: start: 20231023, end: 20231128
  6. DARATUMUMAB [Suspect]
     Active Substance: DARATUMUMAB
     Indication: Plasma cell myeloma
     Dosage: AT D1,D8,D15,D22 OF EACH CYCLE?1800 MG?SUBCUTANEOUS?ROA-20066000
     Dates: start: 20231122, end: 20231122
  7. DARATUMUMAB [Suspect]
     Active Substance: DARATUMUMAB
     Dosage: AT D1,D8,D15,D22 OF EACH CYCLE?1800 MG?SUBCUTANEOUS?ROA-20066000
     Dates: start: 20231114, end: 20231114
  8. DEXAMETHASONE ACETATE [Suspect]
     Active Substance: DEXAMETHASONE ACETATE
     Indication: Plasma cell myeloma
     Dosage: 1 CAPSULE D1, D2, D4, D5, D8, D9, D11, D12, D15, D22?20 MG?ORAL?ROA-20053000
     Dates: start: 20231114
  9. BACTRIM [Suspect]
     Active Substance: SULFAMETHOXAZOLE\TRIMETHOPRIM
     Indication: Opportunistic infection prophylaxis
     Dosage: 1 TABLET MONDAY WEDNESDAY FRIDAY?3 DOSAGE FORM?ORAL?ROA-20053000
     Dates: start: 20231023, end: 20231124
  10. LENALIDOMIDE [Suspect]
     Active Substance: LENALIDOMIDE
     Indication: Plasma cell myeloma
     Dosage: 1 IN THE EVENING?25 MG?ORAL?ROA-20053000
     Dates: start: 20231114, end: 20231128
  11. ELIQUIS [Concomitant]
     Active Substance: APIXABAN
     Indication: Thrombosis prophylaxis
     Dosage: 5 MG?ORAL?ROA-20053000
     Dates: start: 202302

REACTIONS (1)
  - Rash maculo-papular [Not Recovered/Not Resolved]

NARRATIVE: CASE EVENT DATE: 20231123
